FAERS Safety Report 22868879 (Version 2)
Quarter: 2023Q4

REPORT INFORMATION
  Report Type: Report from Study
  Country: JP (occurrence: JP)
  Receive Date: 20230825
  Receipt Date: 20231129
  Transmission Date: 20240110
  Serious: Yes (Death, Other)
  Sender: FDA-Public Use
  Company Number: JP-009507513-2210JPN000798

PATIENT

DRUGS (1)
  1. KEYTRUDA [Suspect]
     Active Substance: PEMBROLIZUMAB
     Indication: Non-small cell lung cancer
     Dosage: 200 MILLIGRAM ON DAY 1 OF A 3-WEEK CYCLE
     Route: 042

REACTIONS (1)
  - Immune-mediated myocarditis [Fatal]

NARRATIVE: CASE EVENT DATE: 20210101
